FAERS Safety Report 4347908-3 (Version None)
Quarter: 2004Q2

REPORT INFORMATION
  Report Type: 
  Country: None (occurrence: None)
  Receive Date: 20040422
  Receipt Date: 20040407
  Transmission Date: 20050107
  Serious: Yes (Other)
  Sender: FDA-Public Use
  Company Number: USA040362504

PATIENT
  Age: 84 Year
  Sex: Female

DRUGS (3)
  1. EVISTA [Suspect]
     Indication: OSTEOPOROSIS
     Dates: start: 20020325, end: 20020331
  2. ACTONEL [Concomitant]
  3. FOSAMAX [Concomitant]

REACTIONS (3)
  - ABDOMINAL DISCOMFORT [None]
  - ABSCESS [None]
  - FRACTURE [None]
